FAERS Safety Report 16788835 (Version 1)
Quarter: 2019Q3

REPORT INFORMATION
  Report Type: Spontaneous
  Country: US (occurrence: US)
  Receive Date: 20190910
  Receipt Date: 20190910
  Transmission Date: 20191005
  Serious: Yes (Hospitalization, Other)
  Sender: FDA-Public Use
  Company Number: US-STRIDES ARCOLAB LIMITED-2019SP008493

PATIENT
  Age: 62 Year
  Sex: Male

DRUGS (7)
  1. MEROPENEM. [Suspect]
     Active Substance: MEROPENEM
     Indication: OSTEOMYELITIS
  2. ERTAPENEM. [Suspect]
     Active Substance: ERTAPENEM SODIUM
     Indication: URINARY TRACT INFECTION
  3. VANCOMYCIN [Suspect]
     Active Substance: VANCOMYCIN
     Indication: OSTEOMYELITIS
  4. MEROPENEM. [Suspect]
     Active Substance: MEROPENEM
     Indication: URINARY TRACT INFECTION
     Dosage: UNK
     Route: 065
  5. ACYCLOVIR                          /00587301/ [Concomitant]
     Active Substance: ACYCLOVIR
     Indication: PROPHYLAXIS
     Dosage: UNK
     Route: 065
  6. VANCOMYCIN [Suspect]
     Active Substance: VANCOMYCIN
     Indication: URINARY TRACT INFECTION
     Dosage: UNK
     Route: 065
  7. ERTAPENEM. [Suspect]
     Active Substance: ERTAPENEM SODIUM
     Indication: OSTEOMYELITIS
     Dosage: UNK
     Route: 065

REACTIONS (10)
  - Rash erythematous [Recovered/Resolved]
  - Erythema multiforme [Recovered/Resolved]
  - Skin ulcer [Recovered/Resolved]
  - Skin plaque [Recovered/Resolved]
  - Lip erosion [Recovered/Resolved]
  - Oral discomfort [Recovered/Resolved]
  - Lip blister [Recovered/Resolved]
  - Lip pain [Recovered/Resolved]
  - Skin fissures [Recovered/Resolved]
  - Oral mucosal exfoliation [Recovered/Resolved]
